FAERS Safety Report 11845450 (Version 1)
Quarter: 2015Q4

REPORT INFORMATION
  Report Type: Spontaneous
  Country: US (occurrence: US)
  Receive Date: 20151217
  Receipt Date: 20151217
  Transmission Date: 20160305
  Serious: Yes (Other)
  Sender: FDA-Public Use
  Company Number: US-NOVOPROD-465740

PATIENT
  Age: 66 Year
  Sex: Female
  Weight: 77.98 kg

DRUGS (1)
  1. LEVEMIR [Suspect]
     Active Substance: INSULIN DETEMIR
     Indication: TYPE 2 DIABETES MELLITUS
     Dosage: 40 U, QD
     Route: 058
     Dates: start: 201505, end: 20150923

REACTIONS (3)
  - Chills [Recovered/Resolved]
  - Blood glucose decreased [Recovered/Resolved]
  - Blood glucose fluctuation [Not Recovered/Not Resolved]

NARRATIVE: CASE EVENT DATE: 20150923
